FAERS Safety Report 6685837-0 (Version None)
Quarter: 2010Q2

REPORT INFORMATION
  Report Type: 
  Country: None (occurrence: None)
  Receive Date: 20100415
  Receipt Date: 20100415
  Transmission Date: 20101027
  Serious: Yes (Hospitalization)
  Sender: FDA-Public Use
  Company Number: None

PATIENT
  Sex: Female
  Weight: 51.7 kg

DRUGS (2)
  1. CISPLATIN [Suspect]
     Dosage: 128 MG
  2. ETOPOSIDE [Suspect]
     Dosage: 480 MG

REACTIONS (4)
  - DIARRHOEA [None]
  - DYSPHAGIA [None]
  - ODYNOPHAGIA [None]
  - VOMITING [None]
